FAERS Safety Report 26121940 (Version 2)
Quarter: 2025Q4

REPORT INFORMATION
  Report Type: Spontaneous
  Country: EU (occurrence: EU)
  Receive Date: 20251204
  Receipt Date: 20251216
  Transmission Date: 20260117
  Serious: Yes (Other)
  Sender: PFIZER
  Company Number: EU-PFM-2025-05736

PATIENT
  Sex: Female

DRUGS (1)
  1. MEKTOVI [Suspect]
     Active Substance: BINIMETINIB
     Indication: Metastases to central nervous system
     Dosage: 3 DF, BID (2/DAY), MORNING AND EVENING FOR AT LEAST A WEEK
     Route: 065
     Dates: start: 20251023, end: 20251120

REACTIONS (5)
  - Hepatic cytolysis [Unknown]
  - Blood alkaline phosphatase increased [Unknown]
  - Accidental overdose [Unknown]
  - Wrong dose [Unknown]
  - Off label use [Unknown]

NARRATIVE: CASE EVENT DATE: 20251101
